FAERS Safety Report 9203743 (Version 1)
Quarter: 2013Q2

REPORT INFORMATION
  Report Type: Spontaneous
  Country: FR (occurrence: FR)
  Receive Date: 20130402
  Receipt Date: 20130402
  Transmission Date: 20140414
  Serious: Yes (Life-Threatening, Hospitalization)
  Sender: FDA-Public Use
  Company Number: FR-ABBOTT-13P-056-1070982-00

PATIENT
  Age: 47 Year
  Sex: Female

DRUGS (2)
  1. HUMIRA [Suspect]
     Indication: CROHN^S DISEASE
     Dates: start: 20110825
  2. PENTASA [Suspect]
     Indication: CROHN^S DISEASE
     Dates: start: 2011

REACTIONS (2)
  - Hypokalaemia [Recovered/Resolved]
  - Cardio-respiratory arrest [Recovered/Resolved]
